FAERS Safety Report 14364764 (Version 1)
Quarter: 2018Q1

REPORT INFORMATION
  Report Type: Spontaneous
  Country: US (occurrence: US)
  Receive Date: 20180107
  Receipt Date: 20180107
  Transmission Date: 20180509
  Serious: Yes (Other)
  Sender: FDA-Public Use
  Company Number: None

PATIENT
  Sex: Female
  Weight: 64.35 kg

DRUGS (1)
  1. TERBINAFINE. [Suspect]
     Active Substance: TERBINAFINE
     Indication: TINEA INFECTION
     Dosage: ?          QUANTITY:1 TABLET(S);?
     Dates: start: 20161130, end: 20171230

REACTIONS (1)
  - Ageusia [None]

NARRATIVE: CASE EVENT DATE: 20180104
